FAERS Safety Report 6263321-6 (Version None)
Quarter: 2009Q3

REPORT INFORMATION
  Report Type: 
  Country: None (occurrence: None)
  Receive Date: 20090710
  Receipt Date: 20090602
  Transmission Date: 20100115
  Serious: No
  Sender: FDA-Public Use
  Company Number: A0789525A

PATIENT
  Age: 71 Year
  Sex: Female

DRUGS (7)
  1. REQUIP XL [Suspect]
     Indication: PARKINSON'S DISEASE
     Dosage: 6MG PER DAY
     Route: 048
     Dates: start: 20090401, end: 20090501
  2. NAMENDA [Concomitant]
  3. SINEMET [Concomitant]
  4. CALCITRIOL [Concomitant]
  5. AMITIZA [Concomitant]
  6. AMLODIPINE [Concomitant]
  7. NEXIUM [Concomitant]

REACTIONS (1)
  - LIP SWELLING [None]
